FAERS Safety Report 13390799 (Version 1)
Quarter: 2017Q1

REPORT INFORMATION
  Report Type: Spontaneous
  Country: US (occurrence: US)
  Receive Date: 20170331
  Receipt Date: 20170331
  Transmission Date: 20170429
  Serious: Yes (Other)
  Sender: FDA-Public Use
  Company Number: None

PATIENT
  Age: 65 Year
  Sex: Female
  Weight: 81 kg

DRUGS (1)
  1. GLIMEPIRIDE. [Suspect]
     Active Substance: GLIMEPIRIDE
     Indication: TYPE 2 DIABETES MELLITUS
     Route: 048

REACTIONS (9)
  - Feeling abnormal [None]
  - Dyskinesia [None]
  - Confusional state [None]
  - Sleep talking [None]
  - Dissociation [None]
  - Emotional disorder [None]
  - Crying [None]
  - Middle insomnia [None]
  - Insomnia [None]

NARRATIVE: CASE EVENT DATE: 20170321
